FAERS Safety Report 13737034 (Version 1)
Quarter: 2017Q3

REPORT INFORMATION
  Report Type: Spontaneous
  Country: US (occurrence: US)
  Receive Date: 20170710
  Receipt Date: 20170710
  Transmission Date: 20171127
  Serious: Yes (Other)
  Sender: FDA-Public Use
  Company Number: US-MEDA-2017060065

PATIENT
  Age: 48 Year
  Sex: Male

DRUGS (7)
  1. FELBAMATE. [Suspect]
     Active Substance: FELBAMATE
     Indication: EPILEPSY
     Dosage: 1800MG-1200MG-1200MG
     Route: 048
     Dates: start: 2008, end: 2009
  2. ATORVASTATIN [Concomitant]
     Active Substance: ATORVASTATIN
     Indication: BLOOD CHOLESTEROL INCREASED
  3. FELBATOL [Concomitant]
     Active Substance: FELBAMATE
     Indication: EPILEPSY
     Dosage: 1600MG-1200MG-1200MG
     Route: 048
     Dates: end: 20111206
  4. LAMOTRIGINE. [Concomitant]
     Active Substance: LAMOTRIGINE
     Indication: EPILEPSY
  5. KEPPRA [Concomitant]
     Active Substance: LEVETIRACETAM
     Indication: EPILEPSY
  6. FELBAMATE. [Suspect]
     Active Substance: FELBAMATE
     Indication: EPILEPSY
     Dosage: 1800MG-1200MG-1200MG
     Route: 048
     Dates: start: 20111207
  7. FELBATOL [Concomitant]
     Active Substance: FELBAMATE
     Indication: EPILEPSY
     Dosage: 1600MG-1200MG-1200MG
     Route: 048

REACTIONS (3)
  - Palpitations [Recovered/Resolved]
  - Seizure [Recovered/Resolved]
  - Dizziness [Recovered/Resolved]

NARRATIVE: CASE EVENT DATE: 201112
